FAERS Safety Report 8615110-2 (Version None)
Quarter: 2012Q3

REPORT INFORMATION
  Report Type: 
  Country: None (occurrence: None)
  Receive Date: 20120823
  Receipt Date: 20120814
  Transmission Date: 20120928
  Serious: Yes (Hospitalization)
  Sender: FDA-Public Use
  Company Number: US-ABBOTT-12P-163-0968965-00

PATIENT
  Sex: Male
  Weight: 102.15 kg

DRUGS (1)
  1. HUMIRA [Suspect]
     Indication: CROHN'S DISEASE
     Route: 058
     Dates: end: 20110801

REACTIONS (6)
  - FALL [None]
  - RHONCHI [None]
  - WHEEZING [None]
  - PULMONARY CONGESTION [None]
  - DYSPNOEA [None]
  - PAINFUL RESPIRATION [None]
